FAERS Safety Report 17656485 (Version 6)
Quarter: 2021Q1

REPORT INFORMATION
  Report Type: Spontaneous
  Country: US (occurrence: US)
  Receive Date: 20200410
  Receipt Date: 20210212
  Transmission Date: 20210419
  Serious: No
  Sender: FDA-Public Use
  Company Number: US-VERTEX PHARMACEUTICALS-2020-000443

PATIENT
  Age: 15 Year
  Sex: Female

DRUGS (7)
  1. TRIKAFTA [Suspect]
     Active Substance: ELEXACAFTOR\IVACAFTOR\TEZACAFTOR
     Dosage: FULL DOSE, TAKING EVERYDAY
     Route: 048
     Dates: start: 2020
  2. TRIKAFTA [Suspect]
     Active Substance: ELEXACAFTOR\IVACAFTOR\TEZACAFTOR
     Dosage: 3 TIMES PER WEEK
     Route: 048
     Dates: start: 20200415, end: 2020
  3. MONTELUKAST [Suspect]
     Active Substance: MONTELUKAST SODIUM
     Dosage: 10 MG, QD
     Route: 065
     Dates: start: 20200610, end: 20200715
  4. MONTELUKAST [Suspect]
     Active Substance: MONTELUKAST SODIUM
     Dosage: 5 MG, QD
     Route: 065
     Dates: start: 2020
  5. TRIKAFTA [Suspect]
     Active Substance: ELEXACAFTOR\IVACAFTOR\TEZACAFTOR
     Indication: CYSTIC FIBROSIS
     Dosage: 100 MG ELEXACAFTOR/ 50 MG TEZACAFTOR/75 MG IVACAFTOR AND 150 MG IVACAFTOR, BID
     Route: 048
     Dates: start: 201912, end: 20200112
  6. TRIKAFTA [Suspect]
     Active Substance: ELEXACAFTOR\IVACAFTOR\TEZACAFTOR
     Dosage: TOOK MORNING DOSE
     Route: 048
     Dates: start: 20200113, end: 20200113
  7. MONTELUKAST [Suspect]
     Active Substance: MONTELUKAST SODIUM
     Indication: ASTHMA
     Dosage: 5 MG, QD
     Route: 065

REACTIONS (13)
  - Pruritus [Recovered/Resolved]
  - Cough [Unknown]
  - Nausea [Unknown]
  - Abdominal pain upper [Not Recovered/Not Resolved]
  - Hallucination, visual [Recovering/Resolving]
  - Skin burning sensation [Unknown]
  - Sleep paralysis [Unknown]
  - Headache [Recovered/Resolved]
  - Rash [Not Recovered/Not Resolved]
  - Anxiety [Recovered/Resolved]
  - Panic attack [Recovering/Resolving]
  - Skin sensitisation [Unknown]
  - Vomiting [Recovered/Resolved]

NARRATIVE: CASE EVENT DATE: 202001
